FAERS Safety Report 13540812 (Version 1)
Quarter: 2017Q2

REPORT INFORMATION
  Report Type: Report from Study
  Country: AU (occurrence: AU)
  Receive Date: 20170512
  Receipt Date: 20170512
  Transmission Date: 20170830
  Serious: Yes (Death, Other)
  Sender: FDA-Public Use
  Company Number: AU-PFIZER INC-2017201657

PATIENT

DRUGS (4)
  1. RITUXIMAB [Suspect]
     Active Substance: RITUXIMAB
     Dosage: 500 MG/M2, CYCLIC (ON THE FIRST DAY OF EVERY SUBSEQUENT CYCLE) (C2-6)
     Route: 042
  2. CYCLOPHOSPHAMIDE. [Suspect]
     Active Substance: CYCLOPHOSPHAMIDE
     Indication: CHRONIC LYMPHOCYTIC LEUKAEMIA
     Dosage: 250 MG/M2, DAILY (28-DAY CYCLE; FOR THREE DAYS, TOTALING 750 MG/M2/CYCLE)
     Route: 042
  3. RITUXIMAB [Suspect]
     Active Substance: RITUXIMAB
     Indication: CHRONIC LYMPHOCYTIC LEUKAEMIA
     Dosage: 375 MG/M2, DAILY  (ON THE FIRST DAY OF CYCLE 1)
     Route: 042
  4. FLUDARABINE PHOSPHATE. [Suspect]
     Active Substance: FLUDARABINE PHOSPHATE
     Indication: CHRONIC LYMPHOCYTIC LEUKAEMIA
     Dosage: 25 MG/M2, DAILY (28-DAY CYCLE; FOR THREE DAYS, TOTALING 75 MG/M2/CYCLE) (D1-3)
     Route: 042

REACTIONS (3)
  - Acute myocardial infarction [Fatal]
  - Pancytopenia [Unknown]
  - Autoimmune haemolytic anaemia [Unknown]
